FAERS Safety Report 5052006-X (Version None)
Quarter: 2006Q3

REPORT INFORMATION
  Report Type: 
  Country: None (occurrence: None)
  Receive Date: 20060711
  Receipt Date: 20060620
  Transmission Date: 20061208
  Serious: Yes (Other)
  Sender: FDA-Public Use
  Company Number: US200606002255

PATIENT
  Sex: Male

DRUGS (2)
  1. CYMBALTA [Suspect]
  2. ACE INHIBITOR NOS [Concomitant]

REACTIONS (1)
  - LANGERHANS' CELL GRANULOMATOSIS [None]
